FAERS Safety Report 5414899-3 (Version None)
Quarter: 2007Q3

REPORT INFORMATION
  Report Type: 
  Country: None (occurrence: None)
  Receive Date: 20070813
  Receipt Date: 20070710
  Transmission Date: 20080115
  Serious: Yes (Hospitalization)
  Sender: FDA-Public Use
  Company Number: 2007RR-08637

PATIENT
  Age: 62 Year
  Sex: Female

DRUGS (6)
  1. SERTRALINE [Suspect]
     Indication: DEPRESSION
     Dosage: 50 MG, QD
  2. BUPROPION HCL [Suspect]
     Indication: DEPRESSION
     Dosage: 300 MG QD
  3. VENLAFAXINE HCL [Concomitant]
  4. CYPROHEPTADINE HCL [Concomitant]
  5. CLONAZEPAM [Concomitant]
  6. PIRACETAM (PIRACETAM) [Concomitant]

REACTIONS (7)
  - AMNESIA [None]
  - CEREBRAL ATROPHY [None]
  - DRUG INTERACTION [None]
  - ELECTROCARDIOGRAM QT PROLONGED [None]
  - ELECTROCARDIOGRAM REPOLARISATION ABNORMALITY [None]
  - SEROTONIN SYNDROME [None]
  - TRANSAMINASES INCREASED [None]
